FAERS Safety Report 18975240 (Version 1)
Quarter: 2021Q1

REPORT INFORMATION
  Report Type: Spontaneous
  Country: US (occurrence: US)
  Receive Date: 20210305
  Receipt Date: 20210305
  Transmission Date: 20210420
  Serious: No
  Sender: FDA-Public Use
  Company Number: US-PFIZER INC-2021143154

PATIENT
  Age: 52 Year
  Sex: Female
  Weight: 63.5 kg

DRUGS (1)
  1. PREMARIN [Suspect]
     Active Substance: ESTROGENS, CONJUGATED
     Indication: HYSTERECTOMY
     Dosage: 0.5 G (0.5G VAGINALLY EVERY EVERY EVENING FOR 14 DAYS, THEN 3 DAYS PER WEEK AFTERWARDS)
     Route: 067
     Dates: start: 20210130, end: 20210203

REACTIONS (10)
  - Thirst [Unknown]
  - Feeling hot [Recovered/Resolved]
  - Migraine [Recovering/Resolving]
  - Headache [Recovering/Resolving]
  - Feeling abnormal [Unknown]
  - Night sweats [Recovered/Resolved]
  - Dysmenorrhoea [Recovered/Resolved]
  - Off label use [Unknown]
  - Increased appetite [Recovered/Resolved]
  - Insomnia [Recovered/Resolved]

NARRATIVE: CASE EVENT DATE: 2021
